FAERS Safety Report 5766387-2 (Version None)
Quarter: 2008Q2

REPORT INFORMATION
  Report Type: 
  Country: None (occurrence: None)
  Receive Date: 20080606
  Receipt Date: 20080527
  Transmission Date: 20081010
  Serious: Yes (Hospitalization)
  Sender: FDA-Public Use
  Company Number: 2008BI013689

PATIENT
  Sex: Female

DRUGS (1)
  1. AVONEX [Suspect]
     Indication: MULTIPLE SCLEROSIS
     Dosage: IM
     Route: 030
     Dates: start: 20050916

REACTIONS (11)
  - BIPOLAR DISORDER [None]
  - DEPRESSION [None]
  - DRUG INTOLERANCE [None]
  - INCREASED TENDENCY TO BRUISE [None]
  - INJECTION SITE IRRITATION [None]
  - MULTIPLE SCLEROSIS RELAPSE [None]
  - MUSCULAR WEAKNESS [None]
  - PARAESTHESIA [None]
  - PARANOIA [None]
  - SKIN DISORDER [None]
  - WEIGHT INCREASED [None]
